FAERS Safety Report 15266269 (Version 4)
Quarter: 2021Q3

REPORT INFORMATION
  Report Type: Spontaneous
  Country: JP (occurrence: JP)
  Receive Date: 20180810
  Receipt Date: 20210910
  Transmission Date: 20211014
  Serious: Yes (Hospitalization, Other)
  Sender: FDA-Public Use
  Company Number: JP-GLAXOSMITHKLINE-JP2018JPN140963

PATIENT
  Age: 43 Year
  Sex: Male

DRUGS (10)
  1. LAMICTAL [Suspect]
     Active Substance: LAMOTRIGINE
     Dosage: 50 MG, BID
     Route: 048
     Dates: start: 20170522, end: 20170604
  2. LAMICTAL [Suspect]
     Active Substance: LAMOTRIGINE
     Dosage: 50 MG, BID
     Route: 048
     Dates: start: 20180110, end: 20180116
  3. LAMICTAL [Suspect]
     Active Substance: LAMOTRIGINE
     Dosage: 200 MG, BID
     Route: 048
     Dates: start: 20180124, end: 20180214
  4. LAMICTAL [Suspect]
     Active Substance: LAMOTRIGINE
     Dosage: 25 MG, BID
     Route: 048
     Dates: start: 20170501, end: 20170521
  5. LAMICTAL [Suspect]
     Active Substance: LAMOTRIGINE
     Dosage: 75 MG, BID
     Route: 048
     Dates: start: 20170605, end: 20170618
  6. LAMICTAL [Suspect]
     Active Substance: LAMOTRIGINE
     Dosage: 100 MG, BID
     Route: 048
     Dates: start: 20170619, end: 20170723
  7. LAMICTAL [Suspect]
     Active Substance: LAMOTRIGINE
     Dosage: 150 MG, BID
     Route: 048
     Dates: start: 20170724, end: 20170806
  8. LAMICTAL [Suspect]
     Active Substance: LAMOTRIGINE
     Indication: BIPOLAR DISORDER
     Dosage: 25 MG, QD
     Route: 048
     Dates: start: 20170403, end: 20170430
  9. LAMICTAL [Suspect]
     Active Substance: LAMOTRIGINE
     Dosage: 400 MG, 1D
     Route: 048
     Dates: start: 20170807, end: 20171224
  10. LAMICTAL [Suspect]
     Active Substance: LAMOTRIGINE
     Dosage: 100 MG, BID
     Route: 048
     Dates: start: 20180117, end: 20180123

REACTIONS (18)
  - Lymphadenopathy [Unknown]
  - Purpura [Unknown]
  - Ocular hyperaemia [Unknown]
  - Therapy cessation [Unknown]
  - Erythema [Recovering/Resolving]
  - Lymphocyte morphology abnormal [Recovering/Resolving]
  - Hepatic function abnormal [Unknown]
  - Drug reaction with eosinophilia and systemic symptoms [Recovering/Resolving]
  - Product use issue [Unknown]
  - Rash maculo-papular [Recovering/Resolving]
  - Pyrexia [Recovering/Resolving]
  - Erythema of eyelid [Unknown]
  - Eosinophil count increased [Recovering/Resolving]
  - Pruritus [Unknown]
  - Enanthema [Unknown]
  - White blood cell count increased [Unknown]
  - Inappropriate schedule of product administration [Unknown]
  - Drug titration error [Unknown]

NARRATIVE: CASE EVENT DATE: 20180110
